FAERS Safety Report 7269924-4 (Version None)
Quarter: 2010Q4

REPORT INFORMATION
  Report Type: 
  Country: None (occurrence: None)
  Receive Date: 20101130
  Receipt Date: 20090729
  Transmission Date: 20110411
  Serious: Yes (Hospitalization)
  Sender: FDA-Public Use
  Company Number: 2008-188700-NL

PATIENT
  Age: 24 Year
  Sex: Female
  Weight: 86.2 kg

DRUGS (5)
  1. NUVARING [Suspect]
     Indication: CONTRACEPTION
     Dates: start: 20070226, end: 20070729
  2. NUVARING [Suspect]
     Indication: MENSTRUATION IRREGULAR
     Dates: start: 20070226, end: 20070729
  3. NUVARING [Suspect]
     Indication: OFF LABEL USE
     Dates: start: 20070226, end: 20070729
  4. FLUOXETINE [Concomitant]
  5. SPIRIVA [Concomitant]

REACTIONS (2)
  - PULMONARY EMBOLISM [None]
  - VESTIBULITIS [None]
